FAERS Safety Report 17419317 (Version 1)
Quarter: 2020Q1

REPORT INFORMATION
  Report Type: Spontaneous
  Country: JP (occurrence: JP)
  Receive Date: 20200214
  Receipt Date: 20200214
  Transmission Date: 20200409
  Serious: Yes (Hospitalization, Other)
  Sender: FDA-Public Use
  Company Number: JP-GLAXOSMITHKLINE-JP2020JPN024417

PATIENT
  Age: 64 Year
  Sex: Female

DRUGS (5)
  1. ZOVIRAX [Suspect]
     Active Substance: ACYCLOVIR
     Indication: HERPES ZOSTER MENINGOENCEPHALITIS
  2. ZOVIRAX [Suspect]
     Active Substance: ACYCLOVIR
     Indication: HERPES ZOSTER
     Dosage: UNK
     Route: 048
  3. ZOVIRAX [Suspect]
     Active Substance: ACYCLOVIR
     Indication: HERPES ZOSTER MENINGOMYELITIS
  4. INSULIN [Concomitant]
     Active Substance: INSULIN NOS
     Indication: METABOLIC ACIDOSIS
     Dosage: UNK
     Route: 042
  5. VALTREX [Suspect]
     Active Substance: VALACYCLOVIR HYDROCHLORIDE
     Indication: HERPES ZOSTER
     Dosage: 1000 MG, 1D
     Route: 048

REACTIONS (12)
  - Altered state of consciousness [Unknown]
  - Herpes zoster [Unknown]
  - Herpes zoster meningomyelitis [Unknown]
  - Herpes zoster meningoencephalitis [Unknown]
  - Prescribed underdose [Unknown]
  - Vomiting [Unknown]
  - Acute kidney injury [Unknown]
  - Metabolic acidosis [Unknown]
  - Hyperglycaemic hyperosmolar nonketotic syndrome [Unknown]
  - Toxic encephalopathy [Unknown]
  - Dehydration [Unknown]
  - Product use issue [Unknown]
